FAERS Safety Report 13756217 (Version 1)
Quarter: 2017Q3

REPORT INFORMATION
  Report Type: Spontaneous
  Country: US (occurrence: US)
  Receive Date: 20170714
  Receipt Date: 20170714
  Transmission Date: 20171127
  Serious: No
  Sender: FDA-Public Use
  Company Number: US-LEXICON PHARMACEUTICALS, INC-17-1606-00437

PATIENT
  Age: 69 Year
  Sex: Male

DRUGS (28)
  1. PREPARATION H NOS [Concomitant]
     Active Substance: COCOA BUTTER\PETROLATUM\PHENYLEPHRINE HYDROCHLORIDE\PHENYLEPHRINE HYDROCHLORIDE OR MINERAL OIL
  2. LEMON OIL [Concomitant]
  3. TRIAMCINOLON [Concomitant]
  4. VITAMIN E [Concomitant]
     Active Substance: .ALPHA.-TOCOPHEROL
  5. VITAMIN B12 [Concomitant]
     Active Substance: CYANOCOBALAMIN
  6. MOISTURIZING LUBRICANT EYE DROPS [Concomitant]
     Active Substance: CARBOXYMETHYLCELLULOSE SODIUM
  7. ACETAMINOPHEN. [Concomitant]
     Active Substance: ACETAMINOPHEN
  8. PRAVASTATIN. [Concomitant]
     Active Substance: PRAVASTATIN
  9. LAVENDER OIL [Concomitant]
     Active Substance: LAVENDER OIL
  10. SOMATULINE DEPOT [Concomitant]
     Active Substance: LANREOTIDE ACETATE
  11. FLUOXETINE [Concomitant]
     Active Substance: FLUOXETINE HYDROCHLORIDE
  12. PROBIOTIC [Concomitant]
     Active Substance: PROBIOTICS NOS
  13. IMODIUM [Concomitant]
     Active Substance: LOPERAMIDE HYDROCHLORIDE
  14. TELOTRISTAT ETHYL [Suspect]
     Active Substance: TELOTRISTAT ETHYL
     Indication: CARCINOID SYNDROME
     Route: 048
     Dates: start: 20170608
  15. TRAZODONE [Concomitant]
     Active Substance: TRAZODONE HYDROCHLORIDE
  16. GLUCOSAMINE [Concomitant]
     Active Substance: GLUCOSAMINE
  17. EUCALYPTUS OIL [Concomitant]
     Active Substance: EUCALYPTUS OIL
  18. EMLA [Concomitant]
     Active Substance: LIDOCAINE\PRILOCAINE
  19. CARVEDILOL. [Concomitant]
     Active Substance: CARVEDILOL
  20. PHOSLO [Concomitant]
     Active Substance: CALCIUM ACETATE
  21. LOW DOSE ASPIRIN [Concomitant]
     Active Substance: ASPIRIN
  22. POLYETHYLENE GLYCOL [Concomitant]
     Active Substance: POLYETHYLENE GLYCOLS
  23. BRILINTA [Concomitant]
     Active Substance: TICAGRELOR
  24. AMOXICILLIN. [Concomitant]
     Active Substance: AMOXICILLIN
  25. NORCO [Concomitant]
     Active Substance: ACETAMINOPHEN\HYDROCODONE BITARTRATE
  26. PANTOPRAZOLE [Concomitant]
     Active Substance: PANTOPRAZOLE
  27. COQ10 [Concomitant]
     Active Substance: UBIDECARENONE
  28. VITAMIN B COMPLEX [Concomitant]
     Active Substance: CYANOCOBALAMIN\DEXPANTHENOL\NIACINAMIDE\PYRIDOXINE HYDROCHLORIDE\RIBOFLAVIN 5^-PHOSPHATE SODIUM\THIAMINE HYDROCHLORIDE\VITAMIN B COMPLEX

REACTIONS (4)
  - Abdominal pain [Not Recovered/Not Resolved]
  - Arthralgia [Not Recovered/Not Resolved]
  - Pain in extremity [Not Recovered/Not Resolved]
  - Decreased appetite [Not Recovered/Not Resolved]

NARRATIVE: CASE EVENT DATE: 201706
